FAERS Safety Report 7339207-2 (Version None)
Quarter: 2011Q1

REPORT INFORMATION
  Report Type: 
  Country: None (occurrence: None)
  Receive Date: 20110308
  Receipt Date: 20110228
  Transmission Date: 20110831
  Serious: Yes (Other)
  Sender: FDA-Public Use
  Company Number: BR-US-EMD SERONO, INC.-7044885

PATIENT
  Sex: Female

DRUGS (5)
  1. REBIF [Suspect]
     Indication: PRODUCT USED FOR UNKNOWN INDICATION
     Dates: start: 20100401
  2. LEVOTHYROXINE [Concomitant]
  3. DICLOFENAC [Concomitant]
  4. ENALAPRIL MALEATE [Concomitant]
  5. HYDROCHLOROTHIAZIDE [Concomitant]

REACTIONS (6)
  - PNEUMONIA [None]
  - FATIGUE [None]
  - COGNITIVE DISORDER [None]
  - CONSTIPATION [None]
  - HYPOAESTHESIA [None]
  - PAIN IN EXTREMITY [None]
